FAERS Safety Report 16018559 (Version 3)
Quarter: 2019Q2

REPORT INFORMATION
  Report Type: Report from Study
  Country: None (occurrence: US)
  Receive Date: 20190228
  Receipt Date: 20190601
  Transmission Date: 20190711
  Serious: Yes (Death)
  Sender: FDA-Public Use
  Company Number: US-ABBVIE-19K-163-2685739-00

PATIENT
  Age: 82 Year
  Sex: Male
  Weight: 72.64 kg

DRUGS (1)
  1. HUMIRA [Suspect]
     Active Substance: ADALIMUMAB
     Indication: RHEUMATOID ARTHRITIS
     Route: 058
     Dates: start: 20080424, end: 201812

REACTIONS (2)
  - Death [Fatal]
  - Arthralgia [Unknown]

NARRATIVE: CASE EVENT DATE: 20190201
